FAERS Safety Report 21337740 (Version 1)
Quarter: 2022Q3

REPORT INFORMATION
  Report Type: Spontaneous
  Country: CN (occurrence: CN)
  Receive Date: 20220915
  Receipt Date: 20220915
  Transmission Date: 20221027
  Serious: Yes (Other)
  Sender: FDA-Public Use
  Company Number: None

PATIENT
  Age: 41 Year
  Sex: Female

DRUGS (6)
  1. CYCLOPHOSPHAMIDE [Suspect]
     Active Substance: CYCLOPHOSPHAMIDE
     Indication: Breast cancer female
     Dosage: 900 MG,QD, DILUTED WITH 0.9% SODIUM CHLORIDE INJECTION D1 Q14D
     Route: 041
     Dates: start: 20220824, end: 20220824
  2. SODIUM CHLORIDE [Suspect]
     Active Substance: SODIUM CHLORIDE
     Indication: Medication dilution
     Dosage: 100 ML, DILUTED IN CYCLOPHOSPHAMIDE FOR INJECTION D1 Q14D
     Route: 041
     Dates: start: 20220824, end: 20220824
  3. DEXTROSE MONOHYDRATE [Suspect]
     Active Substance: DEXTROSE MONOHYDRATE
     Indication: Medication dilution
     Dosage: 100 ML, DILUTED IN PIRARUBICIN HYDROCHLORIDE FOR INJECTION D1 Q14D
     Route: 041
     Dates: start: 20220824, end: 20220824
  4. PIRARUBICIN HYDROCHLORIDE [Suspect]
     Active Substance: PIRARUBICIN HYDROCHLORIDE
     Indication: Breast cancer female
     Dosage: 90 MG,QD, DILUED WITH 5% GLUCOSE INJECTION D1 Q14D
     Route: 041
     Dates: start: 20220824, end: 20220824
  5. Sheng xue bao [Concomitant]
     Indication: Cytopenia
     Dosage: 15 ML, TID, MIXTURE, TWENTY-FOUR HOURS AFTER THE END OF CHEMOTHERAPY
     Route: 048
     Dates: start: 202208
  6. Sheng xue bao [Concomitant]
     Indication: Prophylaxis

REACTIONS (3)
  - Myelosuppression [Recovered/Resolved]
  - White blood cell count decreased [Recovered/Resolved]
  - Neutrophil count decreased [Recovered/Resolved]

NARRATIVE: CASE EVENT DATE: 20220901
